FAERS Safety Report 8209344-9 (Version None)
Quarter: 2012Q1

REPORT INFORMATION
  Report Type: 
  Country: None (occurrence: None)
  Receive Date: 20120314
  Receipt Date: 20120308
  Transmission Date: 20120608
  Serious: No
  Sender: FDA-Public Use
  Company Number: US-PFIZER INC-2012062346

PATIENT
  Sex: Male

DRUGS (8)
  1. VIAGRA [Suspect]
     Dosage: 100 MG, UNK
  2. MULTI-VITAMINS [Suspect]
     Dosage: UNK
  3. LIPITOR [Suspect]
     Indication: BLOOD CHOLESTEROL
     Dosage: 20 MG, 1X/DAY
     Route: 048
  4. FINASTERIDE [Suspect]
     Dosage: UNK
  5. FISH OIL [Suspect]
     Dosage: UNK
  6. ACETYLSALICYLIC ACID SRT [Suspect]
     Dosage: UNK
  7. LISINOPRIL [Suspect]
     Dosage: UNK
  8. METFORMIN HCL [Suspect]
     Dosage: UNK

REACTIONS (4)
  - BLOOD GLUCOSE INCREASED [None]
  - CONSTIPATION [None]
  - MYALGIA [None]
  - GLYCOSYLATED HAEMOGLOBIN INCREASED [None]
